FAERS Safety Report 5191455-6 (Version None)
Quarter: 2006Q4

REPORT INFORMATION
  Report Type: 
  Country: None (occurrence: None)
  Receive Date: 20061219
  Receipt Date: 20061211
  Transmission Date: 20070319
  Serious: Yes (Other)
  Sender: FDA-Public Use
  Company Number: 2006151112

PATIENT
  Age: 54 Year
  Sex: Female
  Weight: 61.2356 kg

DRUGS (5)
  1. ROLAIDS [Suspect]
     Indication: FLATULENCE
     Dosage: 1-2 TABLETS ONCE PER DAY (1 IN 1 D), ORAL
     Route: 048
     Dates: end: 20060101
  2. PEPTO-BISMOL                       (BISMUTH SUBSALICYLATE) [Concomitant]
  3. ZANTAC [Concomitant]
  4. GAS-X (SIMETICONE) [Concomitant]
  5. PRILOSEC [Concomitant]

REACTIONS (3)
  - COELIAC DISEASE [None]
  - DIARRHOEA [None]
  - FLATULENCE [None]
